FAERS Safety Report 14953236 (Version 1)
Quarter: 2018Q2

REPORT INFORMATION
  Report Type: Spontaneous
  Country: US (occurrence: US)
  Receive Date: 20180530
  Receipt Date: 20180530
  Transmission Date: 20180711
  Serious: Yes (Hospitalization)
  Sender: FDA-Public Use
  Company Number: US-JNJFOC-20180536463

PATIENT
  Age: 63 Year
  Sex: Male

DRUGS (1)
  1. INVOKAMET [Suspect]
     Active Substance: CANAGLIFLOZIN\METFORMIN HYDROCHLORIDE
     Indication: TYPE 2 DIABETES MELLITUS
     Dosage: 50/1000 MG AND 150/1000 MG
     Route: 048
     Dates: start: 20170208

REACTIONS (2)
  - Impaired healing [Unknown]
  - Leg amputation [Unknown]

NARRATIVE: CASE EVENT DATE: 201610
